FAERS Safety Report 25310973 (Version 1)
Quarter: 2025Q2

REPORT INFORMATION
  Report Type: Spontaneous
  Country: FR (occurrence: FR)
  Receive Date: 20250514
  Receipt Date: 20250514
  Transmission Date: 20250716
  Serious: Yes (Other)
  Sender: BAXTER
  Company Number: None

PATIENT
  Age: 53 Year
  Sex: Male

DRUGS (4)
  1. DOXORUBICIN [Suspect]
     Active Substance: DOXORUBICIN
     Indication: Hodgkin^s disease
     Dosage: 1 DOSAGE FORM, EVERY 2 WK
     Route: 042
     Dates: start: 201904, end: 201906
  2. VINBLASTINE SULFATE [Suspect]
     Active Substance: VINBLASTINE SULFATE
     Indication: Hodgkin^s disease
     Dosage: 1 DOSAGE FORM, EVERY 2 WK
     Route: 042
     Dates: start: 201904, end: 201906
  3. BLEOMYCIN SULFATE [Suspect]
     Active Substance: BLEOMYCIN SULFATE
     Indication: Hodgkin^s disease
     Dosage: 1 DOSAGE FORM, EVERY 2 WK
     Route: 042
     Dates: start: 201904, end: 201906
  4. DACARBAZINE [Suspect]
     Active Substance: DACARBAZINE
     Indication: Hodgkin^s disease
     Dosage: 1 DOSAGE FORM, EVERY 2 WK
     Route: 042
     Dates: start: 201904, end: 201906

REACTIONS (1)
  - Erectile dysfunction [Not Recovered/Not Resolved]
